FAERS Safety Report 21042131 (Version 1)
Quarter: 2022Q3

REPORT INFORMATION
  Report Type: Spontaneous
  Country: TN (occurrence: None)
  Receive Date: 20220705
  Receipt Date: 20220705
  Transmission Date: 20221027
  Serious: Yes (Other)
  Sender: FDA-Public Use
  Company Number: TN-ROCHE-3126468

PATIENT
  Age: 35 Year
  Sex: Female

DRUGS (1)
  1. TECENTRIQ [Suspect]
     Active Substance: ATEZOLIZUMAB
     Indication: Product used for unknown indication
     Route: 065

REACTIONS (4)
  - Jaundice [Unknown]
  - Ascites [Unknown]
  - Decreased appetite [Unknown]
  - Fatigue [Unknown]
